FAERS Safety Report 25206521 (Version 1)
Quarter: 2025Q2

REPORT INFORMATION
  Report Type: Spontaneous
  Country: SD (occurrence: SD)
  Receive Date: 20250417
  Receipt Date: 20250417
  Transmission Date: 20250717
  Serious: Yes (Other)
  Sender: BAUSCH AND LOMB
  Company Number: SD-BAUSCH-BL-2025-004812

PATIENT
  Age: 51 Year
  Sex: Male

DRUGS (18)
  1. DEXAMETHASONE [Suspect]
     Active Substance: DEXAMETHASONE
     Indication: Dilated cardiomyopathy
     Route: 065
  2. DEXAMETHASONE [Suspect]
     Active Substance: DEXAMETHASONE
     Indication: Cardiac failure
  3. AMLODIPINE [Suspect]
     Active Substance: AMLODIPINE BESYLATE
     Indication: Dilated cardiomyopathy
     Route: 065
  4. AMLODIPINE [Suspect]
     Active Substance: AMLODIPINE BESYLATE
     Indication: Cardiac failure
  5. LOSARTAN [Suspect]
     Active Substance: LOSARTAN
     Indication: Dilated cardiomyopathy
     Route: 065
  6. LOSARTAN [Suspect]
     Active Substance: LOSARTAN
     Indication: Cardiac failure
  7. CARVEDILOL [Suspect]
     Active Substance: CARVEDILOL
     Indication: Dilated cardiomyopathy
     Route: 065
  8. CARVEDILOL [Suspect]
     Active Substance: CARVEDILOL
     Indication: Cardiac failure
  9. FUROSEMIDE [Suspect]
     Active Substance: FUROSEMIDE
     Indication: Dilated cardiomyopathy
     Route: 065
  10. FUROSEMIDE [Suspect]
     Active Substance: FUROSEMIDE
     Indication: Cardiac failure
  11. SPIRONOLACTONE [Suspect]
     Active Substance: SPIRONOLACTONE
     Indication: Dilated cardiomyopathy
     Route: 065
  12. SPIRONOLACTONE [Suspect]
     Active Substance: SPIRONOLACTONE
     Indication: Cardiac failure
  13. CEFTRIAXONE [Suspect]
     Active Substance: CEFTRIAXONE
     Indication: Dilated cardiomyopathy
     Route: 042
  14. CEFTRIAXONE [Suspect]
     Active Substance: CEFTRIAXONE
     Indication: Cardiac failure
  15. VANCOMYCIN [Suspect]
     Active Substance: VANCOMYCIN
     Indication: Dilated cardiomyopathy
     Route: 042
  16. VANCOMYCIN [Suspect]
     Active Substance: VANCOMYCIN
     Indication: Cardiac failure
  17. MANNITOL [Suspect]
     Active Substance: MANNITOL
     Indication: Dilated cardiomyopathy
     Route: 065
  18. MANNITOL [Suspect]
     Active Substance: MANNITOL
     Indication: Cardiac failure

REACTIONS (1)
  - Therapy non-responder [Unknown]
